FAERS Safety Report 9443479 (Version 1)
Quarter: 2013Q3

REPORT INFORMATION
  Report Type: Report from Study
  Country: DE (occurrence: DE)
  Receive Date: 20130806
  Receipt Date: 20130806
  Transmission Date: 20140515
  Serious: Yes (Death)
  Sender: FDA-Public Use
  Company Number: DE-ABBOTT-13P-062-1128761-00

PATIENT
  Age: 78 Year
  Sex: Male

DRUGS (9)
  1. TRENANTONE [Suspect]
     Indication: PROSTATE CANCER METASTATIC
     Route: 058
     Dates: start: 20120402, end: 20130111
  2. ANTIANDROGENS [Concomitant]
     Indication: PROSTATE CANCER METASTATIC
     Dates: start: 20120402
  3. ANTIANDROGENS [Concomitant]
     Dates: start: 20121011
  4. CHEMOTHERAPEUTICS [Concomitant]
     Indication: PROSTATE CANCER METASTATIC
     Dates: start: 20130111, end: 20130509
  5. ACETYLSALICYLIC ACID [Concomitant]
     Indication: PRODUCT USED FOR UNKNOWN INDICATION
     Dates: end: 20130509
  6. BETA BLOCKING AGENTS [Concomitant]
     Indication: PRODUCT USED FOR UNKNOWN INDICATION
     Dates: end: 20130509
  7. DIURETICS [Concomitant]
     Indication: PRODUCT USED FOR UNKNOWN INDICATION
     Dates: end: 20130509
  8. CALCIUM CHANNEL BLOCKERS [Concomitant]
     Indication: PRODUCT USED FOR UNKNOWN INDICATION
     Dates: end: 20130509
  9. LEVOTHYROXINE SODIUM [Concomitant]
     Indication: PRODUCT USED FOR UNKNOWN INDICATION
     Dates: end: 20130509

REACTIONS (1)
  - Prostate cancer [Fatal]
